FAERS Safety Report 15697904 (Version 1)
Quarter: 2018Q4

REPORT INFORMATION
  Report Type: Spontaneous
  Country: CN (occurrence: CN)
  Receive Date: 20181207
  Receipt Date: 20181207
  Transmission Date: 20190205
  Serious: Yes (Other)
  Sender: FDA-Public Use
  Company Number: CN-BAXTER-2018BAX029539

PATIENT
  Age: 11 Year
  Sex: Male
  Weight: 38.5 kg

DRUGS (15)
  1. ETOPOSIDE. [Suspect]
     Active Substance: ETOPOSIDE
     Route: 041
     Dates: start: 20181016, end: 20181016
  2. 5% GLUCOSE AND 0.9% SODIUM CHLORIDE INJECTION [Suspect]
     Active Substance: DEXTROSE\SODIUM CHLORIDE
     Dosage: (4:1) GLUCOSE AND SODIUM CHLORIDE INJECTION 500ML + ETOPOSIDE
     Route: 041
     Dates: start: 20181016, end: 20181016
  3. 5% GLUCOSE AND 0.9% SODIUM CHLORIDE INJECTION [Suspect]
     Active Substance: DEXTROSE\SODIUM CHLORIDE
     Dosage: (4:1) GLUCOSE AND SODIUM CHLORIDE INJECTION 250ML + CYCLOPHOSPHAMIDE FOR INJECTION
     Route: 041
     Dates: start: 20181016, end: 20181016
  4. CYTARABINE HYDROCHLORIDE [Suspect]
     Active Substance: CYTARABINE HYDROCHLORIDE
     Indication: ACUTE LYMPHOCYTIC LEUKAEMIA RECURRENT
     Dosage: DOSAGE FORM: POWDER-INJECTION
     Route: 058
     Dates: start: 20181010, end: 20181011
  5. CYTARABINE HYDROCHLORIDE [Suspect]
     Active Substance: CYTARABINE HYDROCHLORIDE
     Dosage: DOSAGE FORM: POWDER-INJECTION
     Route: 058
     Dates: start: 20181017, end: 20181020
  6. 5% GLUCOSE AND 0.9% SODIUM CHLORIDE INJECTION [Suspect]
     Active Substance: DEXTROSE\SODIUM CHLORIDE
     Dosage: (4:1) GLUCOSE AND SODIUM CHLORIDE INJECTION 250ML + CYCLOPHOSPHAMIDE FOR INJECTION
     Route: 041
     Dates: start: 20181008, end: 20181008
  7. ENDOXAN [Suspect]
     Active Substance: CYCLOPHOSPHAMIDE
     Dosage: DOSAGE FORM: POWDER-INJECTION
     Route: 041
     Dates: start: 20181016, end: 20181016
  8. 5% GLUCOSE AND 0.9% SODIUM CHLORIDE INJECTION [Suspect]
     Active Substance: DEXTROSE\SODIUM CHLORIDE
     Indication: MEDICATION DILUTION
     Dosage: (4:1) GLUCOSE AND SODIUM CHLORIDE INJECTION 500ML + ETOPOSIDE
     Route: 041
     Dates: start: 20181008, end: 20181008
  9. ETOPOSIDE. [Suspect]
     Active Substance: ETOPOSIDE
     Indication: ACUTE LYMPHOCYTIC LEUKAEMIA RECURRENT
     Route: 041
     Dates: start: 20181008, end: 20181008
  10. ENDOXAN [Suspect]
     Active Substance: CYCLOPHOSPHAMIDE
     Indication: ACUTE LYMPHOCYTIC LEUKAEMIA RECURRENT
     Dosage: DOSAGE FORM: POWDER-INJECTION
     Route: 041
     Dates: start: 20181008, end: 20181008
  11. 0.9% SODIUM CHLORIDE INJECTION [Suspect]
     Active Substance: SODIUM CHLORIDE
     Indication: MEDICATION DILUTION
     Dosage: WITH CYTARABINE
     Route: 041
     Dates: start: 20181010, end: 20181011
  12. 0.9% SODIUM CHLORIDE INJECTION [Suspect]
     Active Substance: SODIUM CHLORIDE
     Dosage: WITH CYTARABINE
     Route: 041
     Dates: start: 20181013, end: 20181015
  13. 0.9% SODIUM CHLORIDE INJECTION [Suspect]
     Active Substance: SODIUM CHLORIDE
     Dosage: WITH CYTARABINE
     Route: 041
     Dates: start: 20181017, end: 20181020
  14. OUBEI [Concomitant]
     Indication: ACUTE LYMPHOCYTIC LEUKAEMIA RECURRENT
     Route: 042
     Dates: start: 20181008, end: 20181016
  15. CYTARABINE HYDROCHLORIDE [Suspect]
     Active Substance: CYTARABINE HYDROCHLORIDE
     Dosage: DOSAGE FORM: POWDER-INJECTION
     Route: 058
     Dates: start: 20181013, end: 20181015

REACTIONS (1)
  - Bone marrow failure [Recovering/Resolving]

NARRATIVE: CASE EVENT DATE: 20181021
